FAERS Safety Report 9813482 (Version 1)
Quarter: 2014Q1

REPORT INFORMATION
  Report Type: Spontaneous
  Country: US (occurrence: None)
  Receive Date: 20140110
  Receipt Date: 20140110
  Transmission Date: 20141002
  Serious: Yes (Life-Threatening)
  Sender: FDA-Public Use
  Company Number: None

PATIENT
  Age: 45 Year
  Sex: Male

DRUGS (2)
  1. STELARA [Suspect]
     Indication: PSORIASIS
     Dosage: 45 MG Q12WK SC
     Route: 058
     Dates: start: 201212, end: 201309
  2. ENBREL [Suspect]
     Indication: PSORIASIS
     Dosage: 50 MG Q WK SC
     Route: 058
     Dates: start: 201109, end: 201211

REACTIONS (1)
  - Testis cancer [None]
